FAERS Safety Report 6919004-X (Version None)
Quarter: 2010Q3

REPORT INFORMATION
  Report Type: 
  Country: None (occurrence: None)
  Receive Date: 20100811
  Receipt Date: 20100728
  Transmission Date: 20110219
  Serious: Yes (Hospitalization)
  Sender: FDA-Public Use
  Company Number: GB-ELI_LILLY_AND_COMPANY-GB201008001412

PATIENT
  Age: 54 Year
  Sex: Male

DRUGS (1)
  1. ZYPREXA [Suspect]
     Indication: RESTLESSNESS
     Dosage: 15-20 MG UNK, UNKNOWN
     Route: 065

REACTIONS (6)
  - AGGRESSION [None]
  - BIPOLAR DISORDER [None]
  - CONFUSIONAL STATE [None]
  - DISINHIBITION [None]
  - HOSPITALISATION [None]
  - OFF LABEL USE [None]
